FAERS Safety Report 17455376 (Version 1)
Quarter: 2020Q1

REPORT INFORMATION
  Report Type: Spontaneous
  Country: US (occurrence: US)
  Receive Date: 20200212
  Receipt Date: 20200212
  Transmission Date: 20200409
  Serious: No
  Sender: FDA-Public Use
  Company Number: None

PATIENT
  Age: 75 Year
  Sex: Female

DRUGS (2)
  1. MACROBID [Suspect]
     Active Substance: NITROFURANTOIN\NITROFURANTOIN MONOHYDRATE
  2. REPATHA [Suspect]
     Active Substance: EVOLOCUMAB
     Route: 048
     Dates: start: 20190131, end: 20200202

REACTIONS (6)
  - Chills [None]
  - Dyspnoea [None]
  - Abdominal pain upper [None]
  - Chest pain [None]
  - Anaphylactic reaction [None]
  - Pyrexia [None]

NARRATIVE: CASE EVENT DATE: 20200201
